FAERS Safety Report 6505154-9 (Version None)
Quarter: 2009Q4

REPORT INFORMATION
  Report Type: 
  Country: None (occurrence: None)
  Receive Date: 20091218
  Receipt Date: 20091209
  Transmission Date: 20100525
  Serious: Yes (Other)
  Sender: FDA-Public Use
  Company Number: PHHY2009DK51939

PATIENT
  Sex: Male
  Weight: 70 kg

DRUGS (3)
  1. VOLTAREN [Suspect]
     Indication: OSTEOARTHRITIS
     Dosage: 100 MG/DAY
     Dates: start: 20080201, end: 20080925
  2. VOLTAREN [Suspect]
     Dosage: UNK
     Dates: end: 20081001
  3. NEXIUM [Concomitant]
     Indication: GASTRITIS PROPHYLAXIS
     Dosage: 20 MG, QD
     Route: 048
     Dates: start: 20080201, end: 20081001

REACTIONS (11)
  - BLOOD IMMUNOGLOBULIN E INCREASED [None]
  - BLOOD URINE PRESENT [None]
  - COUGH [None]
  - EOSINOPHILIA [None]
  - GLOMERULONEPHRITIS [None]
  - HYPERSENSITIVITY [None]
  - HYPERTENSION [None]
  - LYMPHADENITIS [None]
  - LYMPHADENOPATHY [None]
  - OEDEMA PERIPHERAL [None]
  - PROTEINURIA [None]
